FAERS Safety Report 10949436 (Version 2)
Quarter: 2015Q2

REPORT INFORMATION
  Report Type: Spontaneous
  Country: US (occurrence: US)
  Receive Date: 20150324
  Receipt Date: 20150524
  Transmission Date: 20150821
  Serious: Yes (Other)
  Sender: FDA-Public Use
  Company Number: US-JNJFOC-20140413797

PATIENT
  Sex: Male

DRUGS (1)
  1. ZYTIGA [Suspect]
     Active Substance: ABIRATERONE ACETATE
     Indication: PROSTATE CANCER
     Dosage: STRENGTH: 250 MG/ON EMPTY STOMACH
     Route: 048
     Dates: start: 20140211

REACTIONS (2)
  - Dyspnoea [Unknown]
  - Rash papular [Unknown]

NARRATIVE: CASE EVENT DATE: 2014
